FAERS Safety Report 23229677 (Version 1)
Quarter: 2023Q4

REPORT INFORMATION
  Report Type: Spontaneous
  Country: SE (occurrence: None)
  Receive Date: 20231127
  Receipt Date: 20231127
  Transmission Date: 20240109
  Serious: Yes (Hospitalization, Other)
  Sender: FDA-Public Use
  Company Number: 2023A268192

PATIENT
  Age: 66 Year
  Sex: Male

DRUGS (9)
  1. ROSUVASTATIN [Suspect]
     Active Substance: ROSUVASTATIN
     Indication: Hyperlipidaemia
     Dosage: 40 MILLIGRAM40.0MG UNKNOWN
     Route: 048
     Dates: start: 20230908, end: 20231110
  2. OZEMPIC [Concomitant]
     Active Substance: SEMAGLUTIDE
     Dosage: UNK
     Route: 058
  3. TICAGRELOR [Concomitant]
     Active Substance: TICAGRELOR
     Dosage: 90 MILLIGRAM, EVERY 12 HRS
     Route: 048
  4. INSULIN HUMAN [Concomitant]
     Active Substance: INSULIN HUMAN
     Dosage: 37 INTERNATIONAL UNIT, 1/DAY
     Route: 058
  5. ASACOL [Concomitant]
     Active Substance: MESALAMINE
     Dosage: 500 MILLIGRAM, EVERY 12 HRS
  6. ASPIRIN [Concomitant]
     Active Substance: ASPIRIN
     Dosage: 75 MILLIGRAM75.0MG UNKNOWN
     Route: 048
  7. NITROLINGUAL [Concomitant]
     Active Substance: NITROGLYCERIN
     Dosage: 0.4 MILLIGRAM, AS NEEDED0.4MG INTERMITTENT
  8. JARDIANCE [Concomitant]
     Active Substance: EMPAGLIFLOZIN
     Dosage: 10 MILLIGRAM, 1/DAY
     Route: 048
  9. RAMIPRIL [Concomitant]
     Active Substance: RAMIPRIL
     Dosage: 2.5 MILLIGRAM, 1/DAY
     Route: 048

REACTIONS (2)
  - Chronic kidney disease [Unknown]
  - Rhabdomyolysis [Not Recovered/Not Resolved]

NARRATIVE: CASE EVENT DATE: 20230101
